FAERS Safety Report 7730490-8 (Version None)
Quarter: 2011Q3

REPORT INFORMATION
  Report Type: 
  Country: None (occurrence: None)
  Receive Date: 20110901
  Receipt Date: 20110901
  Transmission Date: 20111222
  Serious: Yes (Life-Threatening, Disabling)
  Sender: FDA-Public Use
  Company Number: None

PATIENT
  Age: 63 Year
  Sex: Female
  Weight: 68.0396 kg

DRUGS (1)
  1. ACTOS [Suspect]
     Indication: GLYCOSYLATED HAEMOGLOBIN DECREASED
     Dosage: ONE ONCE A DAY ORAL 047
     Route: 048
     Dates: start: 20070101, end: 20110101

REACTIONS (10)
  - MYALGIA [None]
  - CHEST DISCOMFORT [None]
  - FATIGUE [None]
  - CARDIOVASCULAR DISORDER [None]
  - TOOTH DISORDER [None]
  - DYSPNOEA [None]
  - SINUSITIS [None]
  - RESPIRATORY TRACT INFECTION [None]
  - ANXIETY [None]
  - OROPHARYNGEAL PAIN [None]
